FAERS Safety Report 8438290 (Version 2)
Quarter: 2012Q4

REPORT INFORMATION
  Report Type: 
  Country: ES (occurrence: ES)
  Receive Date: 20120302
  Receipt Date: 20121008
  Transmission Date: 20130627
  Serious: Yes (Other)
  Sender: FDA-Public Use
  Company Number: ES-PFIZER INC-2012050579

PATIENT
  Age: 24 Year
  Sex: Female

DRUGS (7)
  1. LINEZOLID [Suspect]
     Indication: TUBERCULOSIS
     Dosage: 1200 mg, 1x/day
  2. ETHAMBUTOL [Interacting]
     Indication: TUBERCULOSIS
  3. PAROXETINE [Concomitant]
     Indication: DEPRESSION
     Dosage: UNK
  4. ISONIAZID [Concomitant]
     Indication: TUBERCULOSIS
  5. RIFAMPICIN [Concomitant]
     Indication: TUBERCULOSIS
  6. PYRAZINAMIDE [Concomitant]
     Indication: TUBERCULOSIS
  7. CLARITHROMYCIN [Concomitant]
     Indication: TUBERCULOSIS

REACTIONS (6)
  - Drug interaction [Unknown]
  - Polyneuropathy [Unknown]
  - Normochromic normocytic anaemia [Recovered/Resolved]
  - Dyspepsia [Recovered/Resolved]
  - Diarrhoea [Recovered/Resolved]
  - Asthenia [Unknown]
